FAERS Safety Report 7337543-7 (Version None)
Quarter: 2011Q1

REPORT INFORMATION
  Report Type: 
  Country: None (occurrence: None)
  Receive Date: 20110308
  Receipt Date: 20091122
  Transmission Date: 20110831
  Serious: Yes (Death, Other)
  Sender: FDA-Public Use
  Company Number: US-BAYER-201038744NA

PATIENT
  Sex: Female
  Weight: 67 kg

DRUGS (36)
  1. AMIODARONE [Concomitant]
     Dosage: 600 MG BOLUS
     Route: 040
  2. LOPRESSOR [Concomitant]
     Dosage: 25 MG, BID
     Route: 048
     Dates: start: 20080821
  3. LINEZOLID [Concomitant]
     Dosage: 300 ML EVERY 12 HOURS
     Route: 042
     Dates: start: 20080823, end: 20080903
  4. ANGIOMAX [Concomitant]
     Dosage: 16 ML, Q1HR
     Route: 042
     Dates: start: 20080810, end: 20080810
  5. PROTONIX [Concomitant]
     Dosage: 40 MG DAILY
     Route: 048
     Dates: start: 20080813
  6. TRASYLOL [Suspect]
     Indication: CORONARY ARTERY BYPASS
     Route: 042
     Dates: start: 20081101
  7. LISINOPRIL [Concomitant]
     Dosage: 5-40 MG DAILY AS INCREASING DOSE
     Route: 048
     Dates: start: 20080825
  8. BUMEX [Concomitant]
     Dosage: 2 MG PUSH
     Route: 042
     Dates: start: 20080922, end: 20080922
  9. PLAVIX [Concomitant]
     Dosage: 300 MG, ONCE
     Route: 048
     Dates: start: 20080809
  10. VISIPAQUE [Concomitant]
     Indication: CATHETERISATION CARDIAC
     Dosage: 300 ML, UNK
     Dates: start: 20080810, end: 20080810
  11. LOVENOX [Concomitant]
     Dosage: 60 MG
     Route: 058
     Dates: start: 20080809, end: 20080907
  12. CARDIZEM [Concomitant]
     Dosage: 10 MG, Q1HR
     Route: 041
     Dates: end: 20080822
  13. DOPAMINE [Concomitant]
     Dosage: UNK
     Route: 041
     Dates: start: 20080822
  14. LEVAQUIN [Concomitant]
     Dosage: 250 MG EVERY 48 HOURS
     Route: 042
     Dates: start: 20080813
  15. NIPRIDE [Concomitant]
     Dosage: UNK
     Dates: start: 20080911
  16. AMIODARONE [Concomitant]
     Dosage: 150 MG, ONCE
     Route: 040
     Dates: start: 20080814, end: 20080814
  17. ACETYLSALICYLIC ACID (} 100 MG, FAST RELEASE) [Concomitant]
     Dosage: 325 MG DAILY LONGTERM
     Route: 048
  18. LASIX [Concomitant]
     Dosage: 80 MG, BID LONGTERM
     Route: 048
  19. COREG [Concomitant]
     Dosage: 6.25 MG, BID
     Route: 048
  20. CARDIZEM [Concomitant]
     Dosage: 120 MG DAILY
     Route: 048
     Dates: start: 20080822
  21. PLAVIX [Concomitant]
     Dosage: 75 MG DAILY
     Route: 048
  22. SOLU-MEDROL [Concomitant]
     Dosage: 40 MG, UNK
     Route: 048
     Dates: start: 20080902, end: 20080902
  23. LIPITOR [Concomitant]
     Dosage: 20 MG DAILY
     Route: 048
     Dates: start: 20080813
  24. DOBUTREX [Concomitant]
     Dosage: UNK
     Dates: start: 20080911
  25. COREG [Concomitant]
     Dosage: 25 MG, BID LONGTERM
     Route: 048
  26. ZOSYN [Concomitant]
     Dosage: 2.25 GRAM EVERY 8 HOURS
     Route: 041
     Dates: start: 20080825, end: 20080903
  27. AMIODARONE [Concomitant]
     Dosage: 400 MG, TID
     Route: 048
  28. PREMARIN [Concomitant]
     Dosage: 0.625 MG DAILY LONGTERM
     Route: 048
     Dates: end: 20080809
  29. LASIX [Concomitant]
     Dosage: 80-100 MG 2-3 TIMES DAY
  30. CARDIZEM [Concomitant]
     Dosage: 5 MG BOLUS
     Route: 040
     Dates: start: 20080822, end: 20080822
  31. AMIODARONE [Concomitant]
     Dosage: 0.5 MG, Q1HR
     Route: 041
  32. AMLODIPINE [Concomitant]
     Dosage: 5 MG DAILY
     Route: 048
  33. BUMEX [Concomitant]
     Dosage: 10 MG IN 125 D5W OVER 12 HOURS
  34. ANGIOMAX [Concomitant]
     Dosage: 9 ML BOLUS
     Route: 040
     Dates: start: 20080810, end: 20080810
  35. DARVOCET [Concomitant]
     Dosage: EVERY SIX HOURS LONGTERM
     Route: 048
  36. PREMARIN [Concomitant]
     Dosage: 0.625 MG DAILY
     Route: 048
     Dates: start: 20080910

REACTIONS (12)
  - RENAL IMPAIRMENT [None]
  - DEATH [None]
  - ANXIETY [None]
  - INJURY [None]
  - RENAL FAILURE [None]
  - EMOTIONAL DISTRESS [None]
  - FEAR [None]
  - PAIN [None]
  - MULTI-ORGAN FAILURE [None]
  - RENAL INJURY [None]
  - STRESS [None]
  - UNEVALUABLE EVENT [None]
